FAERS Safety Report 7238417 (Version 2)
Quarter: 2013Q3

REPORT INFORMATION
  Report Type: Spontaneous
  Country: US (occurrence: US)
  Receive Date: 20100106
  Receipt Date: 20130731
  Transmission Date: 20140515
  Serious: Yes (Other)
  Sender: FDA-Public Use
  Company Number: US-PFIZER INC-2009252560

PATIENT
  Age: 54 Year
  Sex: Male
  Weight: 84.81 kg

DRUGS (1)
  1. CHANTIX [Suspect]
     Indication: SMOKING CESSATION THERAPY
     Dosage: 1 MG, 2X/DAY
     Route: 048
     Dates: start: 20090506, end: 20090627

REACTIONS (4)
  - Suicidal ideation [Unknown]
  - Depression [Unknown]
  - Mental disorder [Unknown]
  - Anxiety [Unknown]
